FAERS Safety Report 4667220-2 (Version None)
Quarter: 2005Q2

REPORT INFORMATION
  Report Type: 
  Country: None (occurrence: None)
  Receive Date: 20050520
  Receipt Date: 20041111
  Transmission Date: 20051028
  Serious: Yes (Other)
  Sender: FDA-Public Use
  Company Number: US-BRISTOL-MYERS SQUIBB COMPANY-12763462

PATIENT

DRUGS (1)
  1. SINEMET [Suspect]

REACTIONS (1)
  - ANAEMIA [None]
